FAERS Safety Report 9164767 (Version 1)
Quarter: 2013Q1

REPORT INFORMATION
  Report Type: Spontaneous
  Country: US (occurrence: None)
  Receive Date: 20130313
  Receipt Date: 20130313
  Transmission Date: 20140127
  Serious: Yes (Other)
  Sender: FDA-Public Use
  Company Number: None

PATIENT
  Sex: Male

DRUGS (1)
  1. ROSUVASTATIN [Suspect]
     Indication: LOW DENSITY LIPOPROTEIN INCREASED
     Dates: start: 20121227, end: 20130110

REACTIONS (8)
  - Malaise [None]
  - Asthenia [None]
  - Arthralgia [None]
  - Local swelling [None]
  - Fatigue [None]
  - Urine abnormality [None]
  - Impaired work ability [None]
  - Local swelling [None]
